FAERS Safety Report 8329611-8 (Version None)
Quarter: 2012Q2

REPORT INFORMATION
  Report Type: 
  Country: None (occurrence: None)
  Receive Date: 20120502
  Receipt Date: 20120323
  Transmission Date: 20120825
  Serious: Yes (Other)
  Sender: FDA-Public Use
  Company Number: US-ROCHE-749858

PATIENT
  Sex: Male
  Weight: 61.2 kg

DRUGS (2)
  1. ACCUTANE [Suspect]
     Indication: ACNE
     Route: 065
     Dates: start: 20070301, end: 20071001
  2. CLARAVIS [Suspect]
     Indication: PRODUCT USED FOR UNKNOWN INDICATION
     Route: 065

REACTIONS (8)
  - COLITIS ULCERATIVE [None]
  - ASPARTATE AMINOTRANSFERASE INCREASED [None]
  - BONE DENSITY DECREASED [None]
  - CHOLANGITIS SCLEROSING [None]
  - BLOOD TRIGLYCERIDES INCREASED [None]
  - GAMMA-GLUTAMYLTRANSFERASE INCREASED [None]
  - INFLAMMATORY BOWEL DISEASE [None]
  - ALANINE AMINOTRANSFERASE INCREASED [None]
